FAERS Safety Report 5775349-0 (Version None)
Quarter: 2008Q2

REPORT INFORMATION
  Report Type: 
  Country: None (occurrence: None)
  Receive Date: 20080616
  Receipt Date: 20080616
  Transmission Date: 20081010
  Serious: Yes (Life-Threatening)
  Sender: FDA-Public Use
  Company Number: None

PATIENT
  Sex: Male

DRUGS (4)
  1. FLUDARABINE PHOSPHATE [Suspect]
     Indication: CHRONIC MYELOID LEUKAEMIA
     Dosage: 51 MG DAILY IV DRIP
     Route: 041
     Dates: start: 20080221, end: 20080225
  2. THIOTEPA [Suspect]
     Indication: CHRONIC MYELOID LEUKAEMIA
     Dosage: 300 MG DAILY IV DRIP
     Route: 041
     Dates: start: 20080221, end: 20080222
  3. RABBIT ATG [Concomitant]
  4. TBI [Concomitant]

REACTIONS (6)
  - ASPIRATION [None]
  - COMPUTERISED TOMOGRAM ABNORMAL [None]
  - CONVULSION [None]
  - INFECTION [None]
  - RESPIRATORY DISTRESS [None]
  - UNRESPONSIVE TO STIMULI [None]
